FAERS Safety Report 4354568-4 (Version None)
Quarter: 2004Q2

REPORT INFORMATION
  Report Type: 
  Country: None (occurrence: None)
  Receive Date: 20040506
  Receipt Date: 20040506
  Transmission Date: 20050107
  Serious: No
  Sender: FDA-Public Use
  Company Number: None

PATIENT
  Sex: Male
  Weight: 78.4723 kg

DRUGS (13)
  1. GATIFLOXACIN [Suspect]
     Indication: OTITIS MEDIA
     Dosage: 200 MG DAILY ORAL
     Route: 048
     Dates: start: 20040202, end: 20040212
  2. BACLOFEN [Concomitant]
  3. FOSINOPRIL NA [Concomitant]
  4. GLIPIZIDE [Concomitant]
  5. CITALOPRAM HYDROBROMIDE [Concomitant]
  6. DILTIAZEM [Concomitant]
  7. PANTOPRAZOLE [Concomitant]
  8. ACETAMINOPHEN [Concomitant]
  9. HYDROCHLOROTHIAZIDE [Concomitant]
  10. SIMVASTATIN [Concomitant]
  11. HUMULIN N [Concomitant]
  12. TRAZODONE HCL [Concomitant]
  13. COUMADIN [Concomitant]

REACTIONS (1)
  - BLOOD GLUCOSE DECREASED [None]
